FAERS Safety Report 4688416-X (Version None)
Quarter: 2005Q2

REPORT INFORMATION
  Report Type: 
  Country: None (occurrence: None)
  Receive Date: 20050609
  Receipt Date: 20050527
  Transmission Date: 20051028
  Serious: Yes (Other)
  Sender: FDA-Public Use
  Company Number: 2005053481

PATIENT
  Sex: Female

DRUGS (1)
  1. SOMAVERT (PEGVISOMAT) [Suspect]
     Indication: ACROMEGALY
     Dosage: 25 MG

REACTIONS (1)
  - PITUITARY TUMOUR RECURRENT [None]
